FAERS Safety Report 4450672-0 (Version None)
Quarter: 2004Q3

REPORT INFORMATION
  Report Type: 
  Country: None (occurrence: None)
  Receive Date: 20040914
  Receipt Date: 20040914
  Transmission Date: 20050211
  Serious: Yes (Death, Life-Threatening, Hospitalization)
  Sender: FDA-Public Use
  Company Number: None

PATIENT
  Sex: Female
  Weight: 72.5755 kg

DRUGS (6)
  1. AVASTIN [Suspect]
     Indication: COLORECTAL CANCER METASTATIC
     Dosage: 360 MG QO WEEK INTRAVENOUS
     Route: 042
     Dates: start: 20040803, end: 20040831
  2. OXALIPLATIN [Concomitant]
  3. LEUCOVORIN CALCIUM [Concomitant]
  4. FLUOROURACIL [Concomitant]
  5. BEVACIZUMAB [Concomitant]
  6. NEUPOGEN [Concomitant]

REACTIONS (12)
  - BRAIN OEDEMA [None]
  - CEREBRAL HAEMORRHAGE [None]
  - CEREBROVASCULAR DISORDER [None]
  - CONFUSIONAL STATE [None]
  - CONVULSION [None]
  - DISORIENTATION [None]
  - HYPOTENSION [None]
  - INCOHERENT [None]
  - MENTAL STATUS CHANGES [None]
  - OLIGURIA [None]
  - PUPIL FIXED [None]
  - RESPIRATORY ARREST [None]
